FAERS Safety Report 6404094-3 (Version None)
Quarter: 2009Q4

REPORT INFORMATION
  Report Type: 
  Country: None (occurrence: None)
  Receive Date: 20091016
  Receipt Date: 20090909
  Transmission Date: 20100525
  Serious: No
  Sender: FDA-Public Use
  Company Number: SE-ALEXION-A200900747

PATIENT

DRUGS (3)
  1. SOLIRIS [Suspect]
     Indication: PAROXYSMAL NOCTURNAL HAEMOGLOBINURIA
     Dosage: 900 MG, UNK
  2. CORTICOSTEROID NOS [Concomitant]
     Dosage: 10 MG, UNK
  3. CORTICOSTEROID NOS [Concomitant]
     Dosage: 5 MG, UNK

REACTIONS (7)
  - ABDOMINAL PAIN [None]
  - FEELING ABNORMAL [None]
  - GRIP STRENGTH DECREASED [None]
  - HAEMOLYSIS [None]
  - HAPTOGLOBIN DECREASED [None]
  - HEADACHE [None]
  - OEDEMA PERIPHERAL [None]
